FAERS Safety Report 5262644-7 (Version None)
Quarter: 2007Q1

REPORT INFORMATION
  Report Type: 
  Country: None (occurrence: None)
  Receive Date: 20070312
  Receipt Date: 20070228
  Transmission Date: 20070707
  Serious: Yes (Other)
  Sender: FDA-Public Use
  Company Number: US-AMGEN-US213252

PATIENT
  Sex: Male
  Weight: 69 kg

DRUGS (4)
  1. PROCRIT [Suspect]
     Indication: ANAEMIA
     Route: 058
     Dates: start: 20070201, end: 20070201
  2. RIBAVIRIN [Concomitant]
     Route: 058
     Dates: start: 20061201
  3. INTERFERON [Concomitant]
     Route: 058
     Dates: start: 20061201
  4. CYMBALTA [Concomitant]
     Route: 048
     Dates: start: 20070101

REACTIONS (1)
  - NERVOUS SYSTEM DISORDER [None]
